FAERS Safety Report 8815499 (Version 3)
Quarter: 2013Q4

REPORT INFORMATION
  Report Type: Report from Study
  Country: HU (occurrence: HU)
  Receive Date: 20120928
  Receipt Date: 20131210
  Transmission Date: 20140711
  Serious: Yes (Other)
  Sender: FDA-Public Use
  Company Number: HU-GLAXOSMITHKLINE-B0833443A

PATIENT
  Age: 65 Year
  Sex: Female

DRUGS (3)
  1. TYVERB [Suspect]
     Indication: BREAST CANCER
     Dosage: 1250MG PER DAY
     Route: 065
     Dates: start: 201206
  2. XELODA [Suspect]
     Indication: BREAST CANCER
     Dosage: 2000MG PER DAY
     Route: 065
     Dates: start: 201206
  3. NEBIVOLOL [Concomitant]
     Indication: ARRHYTHMIA
     Dosage: 2.5MG PER DAY
     Dates: start: 2011

REACTIONS (3)
  - Haemorrhage [Recovered/Resolved]
  - Skin hypertrophy [Recovered/Resolved]
  - Pain of skin [Recovered/Resolved]
